FAERS Safety Report 24606632 (Version 3)
Quarter: 2024Q4

REPORT INFORMATION
  Report Type: Spontaneous
  Country: PL (occurrence: PL)
  Receive Date: 20241112
  Receipt Date: 20241227
  Transmission Date: 20250115
  Serious: Yes (Other)
  Sender: B BRAUN
  Company Number: PL-B.Braun Medical Inc.-2164836

PATIENT
  Age: 31 Year
  Sex: Female

DRUGS (17)
  1. ACETAMINOPHEN [Suspect]
     Active Substance: ACETAMINOPHEN
     Indication: Oropharyngeal pain
  2. AMLODIPINE [Suspect]
     Active Substance: AMLODIPINE BESYLATE
  3. SEMAGLUTIDE [Concomitant]
     Active Substance: SEMAGLUTIDE
  4. AMLODIPINE [Concomitant]
     Active Substance: AMLODIPINE BESYLATE
  5. MIRTAZAPINE [Concomitant]
     Active Substance: MIRTAZAPINE
  6. SERTRALINE [Concomitant]
     Active Substance: SERTRALINE HYDROCHLORIDE
  7. METAMIZOLE [Suspect]
     Active Substance: METAMIZOLE
  8. KETOPROFEN [Suspect]
     Active Substance: KETOPROFEN
  9. LIDOCAINE HYDROCHLORIDE [Suspect]
     Active Substance: LIDOCAINE HYDROCHLORIDE
  10. ZOLPIDEM TARTRATE [Suspect]
     Active Substance: ZOLPIDEM TARTRATE
  11. SERTRALINE HYDROCHLORIDE [Suspect]
     Active Substance: SERTRALINE HYDROCHLORIDE
  12. RAMIPRIL [Suspect]
     Active Substance: RAMIPRIL
  13. NALTREXONE [Suspect]
     Active Substance: NALTREXONE
  14. DICLOFENAC [Suspect]
     Active Substance: DICLOFENAC
  15. BUPROPION [Suspect]
     Active Substance: BUPROPION
  16. AMOXICILLIN\CLAVULANATE POTASSIUM [Suspect]
     Active Substance: AMOXICILLIN\CLAVULANATE POTASSIUM
  17. AMOXICILLIN [Suspect]
     Active Substance: AMOXICILLIN

REACTIONS (6)
  - Drug interaction [Recovering/Resolving]
  - Condition aggravated [Recovering/Resolving]
  - Pain [Recovering/Resolving]
  - Dysphagia [Recovering/Resolving]
  - Burning sensation [Recovering/Resolving]
  - Oropharyngeal pain [Recovering/Resolving]
